FAERS Safety Report 5472537-8 (Version None)
Quarter: 2007Q3

REPORT INFORMATION
  Report Type: 
  Country: None (occurrence: None)
  Receive Date: 20070927
  Receipt Date: 20070914
  Transmission Date: 20080115
  Serious: Yes (Hospitalization)
  Sender: FDA-Public Use
  Company Number: E3810-01255-SPO-IT

PATIENT
  Age: 74 Year
  Sex: Female

DRUGS (7)
  1. RABEPRAZOLE SODIUM [Suspect]
     Indication: ULCER
     Dosage: 10 MG,
     Dates: start: 20070330, end: 20070623
  2. ATORVASTATIN CALCIUM [Concomitant]
     Indication: DYSLIPIDAEMIA
     Dosage: 40 MG, ORAL
     Route: 048
     Dates: start: 20070330, end: 20070623
  3. CLOPIDOGREL [Suspect]
     Indication: ANTICOAGULANT THERAPY
     Dosage: 75 MG, ORAL
     Route: 048
     Dates: start: 20070330, end: 20070623
  4. ACETYLSALICYLIC ACID SRT [Concomitant]
  5. RAMIPRIL [Concomitant]
  6. SALMETEROL (SALMETEROL) [Concomitant]
  7. CLEBOPRIDE (CLEBOPRIDE) [Concomitant]

REACTIONS (7)
  - AMNESIA [None]
  - BRAIN SCAN ABNORMAL [None]
  - CONFUSIONAL STATE [None]
  - DYSLEXIA [None]
  - GAIT DISTURBANCE [None]
  - MOVEMENT DISORDER [None]
  - TREMOR [None]
